FAERS Safety Report 15532347 (Version 1)
Quarter: 2018Q4

REPORT INFORMATION
  Report Type: Spontaneous
  Country: HU (occurrence: HU)
  Receive Date: 20181019
  Receipt Date: 20181019
  Transmission Date: 20190205
  Serious: Yes (Hospitalization, Other)
  Sender: FDA-Public Use
  Company Number: PHHY2018HU124106

PATIENT
  Age: 30 Year
  Sex: Female

DRUGS (3)
  1. CEFAZOLIN [Suspect]
     Active Substance: CEFAZOLIN
     Indication: ENDOCARDITIS
  2. CEFAZOLIN [Suspect]
     Active Substance: CEFAZOLIN
     Indication: STAPHYLOCOCCAL SEPSIS
     Dosage: 2 G, Q8H
     Route: 041
  3. DOPAMINE [Suspect]
     Active Substance: DOPAMINE\DOPAMINE HYDROCHLORIDE
     Indication: PRODUCT USED FOR UNKNOWN INDICATION
     Dosage: 5 UG/KG/MIN
     Route: 065

REACTIONS (6)
  - Staphylococcal sepsis [Unknown]
  - Anaemia [Unknown]
  - Multiple organ dysfunction syndrome [Unknown]
  - Premature delivery [Unknown]
  - Pyrexia [Unknown]
  - Maternal exposure during delivery [Unknown]
